FAERS Safety Report 7262146-2 (Version None)
Quarter: 2011Q1

REPORT INFORMATION
  Report Type: 
  Country: None (occurrence: None)
  Receive Date: 20110130
  Receipt Date: 20101214
  Transmission Date: 20110831
  Serious: No
  Sender: FDA-Public Use
  Company Number: US-ABBOTT-10P-163-0691551-00

PATIENT
  Age: 37 Year
  Sex: Female

DRUGS (7)
  1. PREVACID [Concomitant]
     Indication: DYSPEPSIA
  2. ZOFRAN [Concomitant]
     Indication: NAUSEA
  3. HUMIRA [Suspect]
     Indication: CROHN'S DISEASE
     Dates: start: 20100901
  4. HUMIRA [Suspect]
     Dosage: TOOK ONE INJECTION
     Dates: start: 20101205
  5. LIALDA [Concomitant]
     Indication: CROHN'S DISEASE
     Dosage: FOUR 1.2GRAM TABLETS DAILY
  6. CREON [Concomitant]
     Indication: PANCREATITIS
  7. LOMOTIL [Concomitant]
     Indication: DIARRHOEA

REACTIONS (4)
  - FATIGUE [None]
  - UPPER RESPIRATORY TRACT INFECTION [None]
  - POOR QUALITY SLEEP [None]
  - SINUS HEADACHE [None]
